FAERS Safety Report 10029691 (Version 1)
Quarter: 2014Q1

REPORT INFORMATION
  Report Type: Spontaneous
  Country: US (occurrence: None)
  Receive Date: 20140321
  Receipt Date: 20140321
  Transmission Date: 20141002
  Serious: Yes (Other)
  Sender: FDA-Public Use
  Company Number: None

PATIENT
  Age: 30 Year
  Sex: Female
  Weight: 58.51 kg

DRUGS (1)
  1. GILDESS FE 1/20 [Suspect]
     Indication: CONTRACEPTION
     Dosage: 1 PILL ONCE DAILY TAKEN BY MOUTH
     Route: 048
     Dates: start: 20131101, end: 20140319

REACTIONS (4)
  - Product substitution issue [None]
  - Metrorrhagia [None]
  - Product quality issue [None]
  - Drug ineffective [None]
